FAERS Safety Report 25285437 (Version 2)
Quarter: 2025Q3

REPORT INFORMATION
  Report Type: Report from Study
  Country: US (occurrence: US)
  Receive Date: 20250509
  Receipt Date: 20250722
  Transmission Date: 20251020
  Serious: Yes (Hospitalization)
  Sender: ABBVIE
  Company Number: US-ABBVIE-6029433

PATIENT
  Age: 65 Year
  Sex: Male

DRUGS (3)
  1. RINVOQ [Suspect]
     Active Substance: UPADACITINIB
     Indication: Rheumatoid arthritis
     Dosage: STRENGTH: 15 MG, DOSE FORM- EXTENDED RELEASE TABLET
     Route: 048
     Dates: start: 202406, end: 202502
  2. RINVOQ [Suspect]
     Active Substance: UPADACITINIB
     Indication: Rheumatoid arthritis
     Dosage: STRENGTH: 15 MG, DOSE FORM
     Route: 048
     Dates: start: 202504
  3. RINVOQ [Suspect]
     Active Substance: UPADACITINIB
     Indication: Rheumatoid arthritis
     Dosage: STRENGTH: 15 MG, DOSE FORM
     Route: 048

REACTIONS (13)
  - Nephrolithiasis [Unknown]
  - Arthralgia [Unknown]
  - Pain [Not Recovered/Not Resolved]
  - Back pain [Not Recovered/Not Resolved]
  - Musculoskeletal stiffness [Not Recovered/Not Resolved]
  - Spinal osteoarthritis [Not Recovered/Not Resolved]
  - Weight decreased [Unknown]
  - Weight increased [Unknown]
  - Acute kidney injury [Recovering/Resolving]
  - Arthropathy [Unknown]
  - General physical condition abnormal [Unknown]
  - Feeding disorder [Unknown]
  - Calculus bladder [Unknown]

NARRATIVE: CASE EVENT DATE: 20240101
